FAERS Safety Report 7294752 (Version 3)
Quarter: 2012Q4

REPORT INFORMATION
  Report Type: 
  Country: US (occurrence: US)
  Receive Date: 20100225
  Receipt Date: 20120829
  Transmission Date: 20130627
  Serious: Yes (Death)
  Sender: FDA-Public Use
  Company Number: US-BAYER-201014711NA

PATIENT
  Age: 48 Year
  Sex: Female
  Weight: 86.62 kg

DRUGS (14)
  1. YAZ [Suspect]
     Indication: CONTRACEPTION
     Dosage: UNK
     Route: 048
     Dates: start: 20080107, end: 20080312
  2. YAZ [Suspect]
     Indication: GENITAL HAEMORRHAGE
  3. ALBUTEROL [Concomitant]
  4. IBUPROFEN [Concomitant]
  5. Z-PAK [Concomitant]
     Dosage: 250 mg, UNK
     Dates: start: 20080212
  6. MUCINEX [Concomitant]
     Dosage: 600 mg, UNK
     Dates: start: 20080212
  7. PREDNISONE [Concomitant]
     Dosage: 10 mg, UNK
     Dates: start: 20080212
  8. METRONIDAZOLE [Concomitant]
     Dosage: 500 mg, BID
     Route: 048
     Dates: start: 20080131, end: 20080301
  9. ACETAMINOPHEN [Concomitant]
     Dosage: 500 mg, PRN
     Route: 048
     Dates: start: 20080206
  10. MOMETASONE FUROATE [Concomitant]
     Dosage: 220 mcg, 2 puffs at bedtime
     Route: 055
     Dates: start: 20080206
  11. FORMOTEROL FUMARATE [Concomitant]
     Dosage: 12 mcg, BID
     Route: 055
     Dates: start: 20080206
  12. ACETYLSALICYLIC ACID({=100 MG) [Concomitant]
     Dosage: 81 mg, QD
     Route: 048
     Dates: start: 20080206
  13. PNEUMOCOCCAL VACCINE [Concomitant]
     Dosage: 0.5 ml, UNK
     Route: 030
     Dates: start: 20080206
  14. INFLUENZA VACCINE [Concomitant]
     Dosage: 0.5 ml, UNK
     Dates: start: 20080206

REACTIONS (3)
  - Pulmonary embolism [Fatal]
  - Deep vein thrombosis [Fatal]
  - Pain in extremity [Fatal]
